FAERS Safety Report 9722996 (Version 2)
Quarter: 2013Q4

REPORT INFORMATION
  Report Type: Spontaneous
  Country: JP (occurrence: JP)
  Receive Date: 20131202
  Receipt Date: 20131220
  Transmission Date: 20140711
  Serious: Yes (Other)
  Sender: FDA-Public Use
  Company Number: JP-ELI_LILLY_AND_COMPANY-JP201311007213

PATIENT
  Age: 65 Year
  Sex: Male

DRUGS (5)
  1. CYMBALTA [Suspect]
     Indication: PAIN
     Dosage: 2 DF, QD
     Route: 048
  2. LYRICA [Suspect]
     Indication: PAIN
     Dosage: UNK
     Route: 048
  3. CELLSEPT [Concomitant]
  4. TACROLIMUS [Concomitant]
  5. SOLU-MEDROL [Concomitant]

REACTIONS (11)
  - Meige^s syndrome [Not Recovered/Not Resolved]
  - Loss of consciousness [Unknown]
  - Suicidal ideation [Unknown]
  - Convulsion [Unknown]
  - Off label use [Recovered/Resolved]
  - Irritability [Unknown]
  - Bipolar I disorder [Unknown]
  - Gynaecomastia [Unknown]
  - Hyperhidrosis [Unknown]
  - Urinary retention [Unknown]
  - Drug withdrawal syndrome [Unknown]
